FAERS Safety Report 5258804-1 (Version None)
Quarter: 2007Q1

REPORT INFORMATION
  Report Type: 
  Country: None (occurrence: None)
  Receive Date: 20070308
  Receipt Date: 20070227
  Transmission Date: 20070707
  Serious: Yes (Death)
  Sender: FDA-Public Use
  Company Number: US-ABBOTT-06P-163-0349816-00

PATIENT
  Sex: Female
  Weight: 236.4 kg

DRUGS (1)
  1. HUMIRA [Suspect]
     Indication: RHEUMATOID ARTHRITIS
     Route: 058
     Dates: end: 20050901

REACTIONS (5)
  - ARRHYTHMIA [None]
  - HYPERKALAEMIA [None]
  - HYPOCALCAEMIA [None]
  - METABOLIC DISORDER [None]
  - RENAL FAILURE [None]
